FAERS Safety Report 11169208 (Version 1)
Quarter: 2015Q2

REPORT INFORMATION
  Report Type: Spontaneous
  Country: JP (occurrence: JP)
  Receive Date: 20150605
  Receipt Date: 20150605
  Transmission Date: 20150821
  Serious: Yes (Hospitalization)
  Sender: FDA-Public Use
  Company Number: PHHY2015JP066162

PATIENT
  Age: 26 Year
  Sex: Male
  Weight: 57 kg

DRUGS (2)
  1. VALPROATE SODIUM. [Suspect]
     Active Substance: VALPROATE SODIUM
     Indication: MYOCLONIC EPILEPSY
     Dosage: 200 MG, BID, 50 TABLETS
     Route: 065
  2. CLONAZEPAM. [Concomitant]
     Active Substance: CLONAZEPAM
     Indication: MYOCLONIC EPILEPSY
     Dosage: 1 MG, QD
     Route: 065

REACTIONS (11)
  - Intentional overdose [Unknown]
  - Amino acid metabolism disorder [Recovering/Resolving]
  - Dehydration [Unknown]
  - Hepatic cirrhosis [Recovering/Resolving]
  - Hyperammonaemia [Recovering/Resolving]
  - Decreased appetite [Unknown]
  - Arthralgia [Unknown]
  - Loss of consciousness [Unknown]
  - Discomfort [Unknown]
  - Hepatic failure [Unknown]
  - Fatigue [Unknown]
